FAERS Safety Report 8314952-0 (Version None)
Quarter: 2012Q2

REPORT INFORMATION
  Report Type: 
  Country: None (occurrence: None)
  Receive Date: 20120426
  Receipt Date: 20120423
  Transmission Date: 20120825
  Serious: Yes (Life-Threatening, Hospitalization, Other)
  Sender: FDA-Public Use
  Company Number: US-MERCK-1203USA02376

PATIENT
  Age: 52 Year
  Sex: Female
  Weight: 97 kg

DRUGS (10)
  1. RANITIDINE [Concomitant]
     Route: 065
  2. METFORMIN [Suspect]
     Route: 065
  3. JANUMET [Suspect]
     Indication: DIABETES MELLITUS
     Route: 048
     Dates: start: 20090101, end: 20120129
  4. HYDROCHLOROTHIAZIDE AND LISINOPRIL [Concomitant]
     Route: 065
  5. CELEXA [Concomitant]
     Route: 065
  6. NEXIUM [Concomitant]
     Route: 065
  7. GLUCOTROL XL [Concomitant]
     Route: 065
  8. DICYCLOMINE HYDROCHLORIDE [Concomitant]
     Route: 065
  9. JANUVIA [Suspect]
     Indication: DIABETES MELLITUS
     Route: 048
     Dates: start: 20120130
  10. HYDROCHLOROTHIAZIDE AND LISINOPRIL [Concomitant]
     Route: 065

REACTIONS (3)
  - URINARY TRACT INFECTION [None]
  - PANCREATITIS [None]
  - HYPONATRAEMIA [None]
